FAERS Safety Report 11315256 (Version 1)
Quarter: 2015Q3

REPORT INFORMATION
  Report Type: Report from Study
  Country: DE (occurrence: PL)
  Receive Date: 20150727
  Receipt Date: 20150727
  Transmission Date: 20151125
  Serious: Yes (Hospitalization)
  Sender: FDA-Public Use
  Company Number: DE-ACTELION-A-NJ2015-121547

PATIENT
  Age: 26 Year
  Sex: Female

DRUGS (2)
  1. VENTAVIS [Suspect]
     Active Substance: ILOPROST
     Indication: PULMONARY ARTERIAL HYPERTENSION
     Dosage: 5 MCG, 8ID
     Route: 055
     Dates: start: 20120306
  2. REVATIO [Concomitant]
     Active Substance: SILDENAFIL CITRATE
     Dosage: UNK
     Dates: start: 20110710

REACTIONS (3)
  - Palpitations [Not Recovered/Not Resolved]
  - Arrhythmia [Unknown]
  - Product use issue [Unknown]

NARRATIVE: CASE EVENT DATE: 201505
